FAERS Safety Report 18252301 (Version 1)
Quarter: 2020Q3

REPORT INFORMATION
  Report Type: Spontaneous
  Country: US (occurrence: US)
  Receive Date: 20200910
  Receipt Date: 20200910
  Transmission Date: 20201103
  Serious: No
  Sender: FDA-Public Use
  Company Number: US-FARMAPROD-202006-0766

PATIENT
  Sex: Female
  Weight: 38 kg

DRUGS (7)
  1. RETAINE MGD [Concomitant]
     Active Substance: LIGHT MINERAL OIL\MINERAL OIL
     Dosage: 0.5%?0.5% DROPERETTE
  2. BESIVANCE [Concomitant]
     Active Substance: BESIFLOXACIN
  3. INVELTYS [Concomitant]
     Active Substance: LOTEPREDNOL ETABONATE
  4. OXERVATE [Suspect]
     Active Substance: CENEGERMIN-BKBJ
     Indication: NEUROTROPHIC KERATOPATHY
     Route: 047
     Dates: start: 20200423
  5. VALACYCLOVIR [Concomitant]
     Active Substance: VALACYCLOVIR HYDROCHLORIDE
  6. ASPIRINE [Concomitant]
     Active Substance: ASPIRIN
  7. ROSUVASTATIN CALCIUM. [Concomitant]
     Active Substance: ROSUVASTATIN CALCIUM

REACTIONS (2)
  - Dry eye [Unknown]
  - Eye pain [Unknown]
